FAERS Safety Report 22166359 (Version 1)
Quarter: 2023Q2

REPORT INFORMATION
  Report Type: Spontaneous
  Country: CN (occurrence: None)
  Receive Date: 20230403
  Receipt Date: 20230403
  Transmission Date: 20230722
  Serious: Yes (Other)
  Sender: FDA-Public Use
  Company Number: CN-ROCHE-3317698

PATIENT
  Age: 49 Year
  Sex: Female

DRUGS (18)
  1. HERCEPTIN [Suspect]
     Active Substance: TRASTUZUMAB
     Indication: Breast cancer
     Route: 065
     Dates: end: 20180214
  2. HERCEPTIN [Suspect]
     Active Substance: TRASTUZUMAB
     Dosage: VINORELBINE IN COMBINATION WITH TRASTUZUMAB AND PERTUZUMAB
     Route: 065
     Dates: start: 201911, end: 20210524
  3. HERCEPTIN [Suspect]
     Active Substance: TRASTUZUMAB
     Dosage: GEMCITABINE + TRASTUZUMAB COMBINED WITH APATINIB
     Route: 065
     Dates: start: 20210524, end: 20220309
  4. HERCEPTIN [Suspect]
     Active Substance: TRASTUZUMAB
     Dosage: ERIBULIN COMBINED WITH TRASTUZUMAB AND PERTUZUMAB
     Route: 065
     Dates: start: 20221110
  5. PERJETA [Suspect]
     Active Substance: PERTUZUMAB
     Indication: Breast cancer
     Dosage: VINORELBINE IN COMBINATION WITH TRASTUZUMAB AND PERTUZUMAB
     Route: 065
     Dates: start: 201911, end: 20210524
  6. PERJETA [Suspect]
     Active Substance: PERTUZUMAB
     Dosage: ERIBULIN COMBINED WITH TRASTUZUMAB AND PERTUZUMAB
     Route: 065
     Dates: start: 20221110
  7. KADCYLA [Suspect]
     Active Substance: ADO-TRASTUZUMAB EMTANSINE
     Indication: Breast cancer
     Route: 065
     Dates: start: 20230309
  8. EPIRUBICIN [Concomitant]
     Active Substance: EPIRUBICIN
     Indication: Breast cancer
     Dates: start: 20161220
  9. CYCLOPHOSPHAMIDE [Concomitant]
     Active Substance: CYCLOPHOSPHAMIDE
     Indication: Breast cancer
     Dates: start: 20161220
  10. DOCETAXEL [Concomitant]
     Active Substance: DOCETAXEL
     Indication: Breast cancer
     Dates: start: 201706
  11. PYROTINIB [Concomitant]
     Active Substance: PYROTINIB
     Indication: Breast cancer
     Dosage: PYROTINIB COMBINED WITH CAPECITABINE
     Route: 048
     Dates: start: 201905
  12. PYROTINIB [Concomitant]
     Active Substance: PYROTINIB
     Dosage: ALBUMIN PACLITAXEL COMBINED WITH PYROTINIB
     Route: 048
     Dates: start: 20220309
  13. CAPECITABINE [Concomitant]
     Active Substance: CAPECITABINE
     Indication: Breast cancer
     Dosage: NOT ROCHE DRUG
     Route: 048
     Dates: start: 201905
  14. VINORELBINE [Concomitant]
     Active Substance: VINORELBINE TARTRATE
     Indication: Breast cancer
     Dates: start: 201911, end: 20210524
  15. GEMCITABINE [Concomitant]
     Active Substance: GEMCITABINE
     Indication: Breast cancer
     Dates: start: 20210524, end: 20220309
  16. APATINIB [Concomitant]
     Active Substance: APATINIB
     Indication: Breast cancer
     Dates: start: 20210524, end: 20220309
  17. PACLITAXEL [Concomitant]
     Active Substance: PACLITAXEL
     Indication: Breast cancer
     Dates: start: 20220309
  18. ERIBULIN [Concomitant]
     Active Substance: ERIBULIN
     Indication: Breast cancer
     Dates: start: 20221110

REACTIONS (3)
  - Gastrointestinal disorder [Unknown]
  - Myelosuppression [Recovered/Resolved]
  - Neurotoxicity [Unknown]

NARRATIVE: CASE EVENT DATE: 20220101
